FAERS Safety Report 5844746-7 (Version None)
Quarter: 2008Q3

REPORT INFORMATION
  Report Type: 
  Country: None (occurrence: None)
  Receive Date: 20080814
  Receipt Date: 20080805
  Transmission Date: 20090109
  Serious: Yes (Hospitalization)
  Sender: FDA-Public Use
  Company Number: US-JNJFOC-20080201018

PATIENT
  Sex: Female
  Weight: 90.72 kg

DRUGS (2)
  1. DURAGESIC-100 [Suspect]
     Indication: PAIN IN EXTREMITY
     Dosage: THREE 100 UG PATCHES
     Route: 062
  2. DURAGESIC-100 [Suspect]
     Indication: BACK PAIN
     Dosage: 2 X 100 UG/HR PATCHES
     Route: 062

REACTIONS (10)
  - ABSCESS LIMB [None]
  - DEVICE LEAKAGE [None]
  - FEELING ABNORMAL [None]
  - HEART RATE INCREASED [None]
  - INCORRECT DRUG ADMINISTRATION DURATION [None]
  - INFLUENZA [None]
  - LIMB INJURY [None]
  - MOTION SICKNESS [None]
  - PALPITATIONS [None]
  - PAROSMIA [None]
